FAERS Safety Report 12314804 (Version 2)
Quarter: 2016Q2

REPORT INFORMATION
  Report Type: Spontaneous
  Country: US (occurrence: US)
  Receive Date: 20160428
  Receipt Date: 20160504
  Transmission Date: 20160815
  Serious: Yes (Hospitalization)
  Sender: FDA-Public Use
  Company Number: US-BAYER-2016-078128

PATIENT
  Age: 41 Year
  Sex: Female

DRUGS (1)
  1. MIRENA [Suspect]
     Active Substance: LEVONORGESTREL
     Dosage: 20 MCG/24HR, CONT
     Route: 015
     Dates: start: 201402

REACTIONS (6)
  - Vaginal discharge [None]
  - Pyrexia [None]
  - Cellulitis [None]
  - Malaise [None]
  - Vaginal cellulitis [None]
  - Clostridium difficile infection [None]

NARRATIVE: CASE EVENT DATE: 201405
